FAERS Safety Report 6492976-6 (Version None)
Quarter: 2009Q4

REPORT INFORMATION
  Report Type: 
  Country: None (occurrence: None)
  Receive Date: 20091211
  Receipt Date: 20091211
  Transmission Date: 20100525
  Serious: Yes (Hospitalization)
  Sender: FDA-Public Use
  Company Number: None

PATIENT
  Age: 54 Year
  Sex: Male

DRUGS (2)
  1. CARBOPLATIN [Suspect]
     Dosage: 1062 MG ONCE IV
     Route: 042
     Dates: start: 20090702, end: 20090709
  2. PACLITAXEL [Suspect]
     Dosage: 414 MG ONCE IV
     Route: 042
     Dates: start: 20090702, end: 20090709

REACTIONS (1)
  - FEBRILE NEUTROPENIA [None]
